FAERS Safety Report 22525681 (Version 1)
Quarter: 2023Q2

REPORT INFORMATION
  Report Type: Spontaneous
  Country: US (occurrence: None)
  Receive Date: 20230605
  Receipt Date: 20230605
  Transmission Date: 20230722
  Serious: Yes (Disabling, Other)
  Sender: FDA-Public Use
  Company Number: None

PATIENT
  Age: 47 Year
  Sex: Male

DRUGS (1)
  1. SOTYKTU [Suspect]
     Active Substance: DEUCRAVACITINIB
     Dosage: FREQUENCY : DAILY;?
     Route: 048

REACTIONS (3)
  - Muscular weakness [None]
  - Muscle atrophy [None]
  - Grip strength decreased [None]

NARRATIVE: CASE EVENT DATE: 20230405
